FAERS Safety Report 8978806 (Version 1)
Quarter: 2012Q4

REPORT INFORMATION
  Report Type: 
  Country: US (occurrence: US)
  Receive Date: 20121220
  Receipt Date: 20121220
  Transmission Date: 20130627
  Serious: No
  Sender: FDA-Public Use
  Company Number: US-PFIZER INC-2012318435

PATIENT
  Age: 52 Year
  Sex: Male
  Weight: 82.54 kg

DRUGS (3)
  1. CELEBREX [Suspect]
     Indication: SPINAL OSTEOARTHRITIS
     Dosage: 200 mg, 2x/day
     Dates: start: 2006, end: 201111
  2. CELEBREX [Suspect]
     Indication: SPONDYLARTHRITIS
  3. TERAZOSIN [Concomitant]
     Indication: PROSTATIC DISORDER
     Dosage: 5 mg, 2x/day

REACTIONS (5)
  - Neck pain [Not Recovered/Not Resolved]
  - Musculoskeletal pain [Not Recovered/Not Resolved]
  - Pain in extremity [Not Recovered/Not Resolved]
  - Arthralgia [Not Recovered/Not Resolved]
  - Drug ineffective [Unknown]
